FAERS Safety Report 8021253-7 (Version None)
Quarter: 2012Q1

REPORT INFORMATION
  Report Type: 
  Country: None (occurrence: None)
  Receive Date: 20120104
  Receipt Date: 20111223
  Transmission Date: 20120608
  Serious: Yes (Hospitalization)
  Sender: FDA-Public Use
  Company Number: US-ELI_LILLY_AND_COMPANY-US201111007700

PATIENT
  Sex: Male

DRUGS (1)
  1. ZYPREXA RELPREVV [Suspect]
     Dosage: 300 MG, EVERY 2 WEEKS

REACTIONS (3)
  - HOSPITALISATION [None]
  - SPINAL FRACTURE [None]
  - PSYCHIATRIC DECOMPENSATION [None]
